FAERS Safety Report 4559272-5 (Version None)
Quarter: 2005Q1

REPORT INFORMATION
  Report Type: 
  Country: None (occurrence: None)
  Receive Date: 20050124
  Receipt Date: 20041109
  Transmission Date: 20050727
  Serious: Yes (Life-Threatening, Hospitalization, Disabling, Other)
  Sender: FDA-Public Use
  Company Number: US-MERCK-0411USA01677

PATIENT
  Age: 70 Year
  Sex: Female
  Weight: 73 kg

DRUGS (10)
  1. VIOXX [Suspect]
     Indication: OSTEOARTHRITIS
     Route: 048
     Dates: start: 20030402, end: 20030101
  2. VIOXX [Suspect]
     Route: 048
     Dates: start: 20031201, end: 20040901
  3. LEXAPRO [Concomitant]
     Route: 065
  4. SYNTHROID [Concomitant]
     Indication: THYROIDECTOMY
     Route: 048
     Dates: start: 19990101
  5. VITAMIN E [Concomitant]
     Route: 048
  6. CENTRUM [Concomitant]
     Route: 048
  7. CALCIUM (UNSPECIFIED) [Concomitant]
     Route: 065
  8. ESTRACE [Concomitant]
     Indication: POSTMENOPAUSE
     Route: 048
  9. FOSAMAX [Concomitant]
     Indication: OSTEOPOROSIS
     Route: 048
  10. HYDROCHLOROTHIAZIDE [Concomitant]
     Route: 048

REACTIONS (25)
  - ABNORMAL DREAMS [None]
  - ACTIVITIES OF DAILY LIVING IMPAIRED [None]
  - ASTHENIA [None]
  - BALANCE DISORDER [None]
  - BRAIN OEDEMA [None]
  - CEREBROVASCULAR ACCIDENT [None]
  - CLUMSINESS [None]
  - COORDINATION ABNORMAL [None]
  - DRUG INEFFECTIVE [None]
  - DRY MOUTH [None]
  - DYSAESTHESIA [None]
  - FEELING ABNORMAL [None]
  - HEMIPARESIS [None]
  - HYPERTENSION [None]
  - HYPOAESTHESIA [None]
  - LABYRINTHITIS [None]
  - LACUNAR INFARCTION [None]
  - MOBILITY DECREASED [None]
  - MUSCLE SPASTICITY [None]
  - NEURALGIA [None]
  - OSTEOARTHRITIS [None]
  - PARAESTHESIA [None]
  - SENSORY DISTURBANCE [None]
  - THALAMIC SYNDROME [None]
  - VERTIGO [None]
